FAERS Safety Report 21496120 (Version 1)
Quarter: 2022Q4

REPORT INFORMATION
  Report Type: Spontaneous
  Country: FR (occurrence: FR)
  Receive Date: 20221022
  Receipt Date: 20221022
  Transmission Date: 20230112
  Serious: Yes (Other)
  Sender: FDA-Public Use
  Company Number: FR-drreddys-LIT/FRA/22/0156068

PATIENT
  Age: 39 Year
  Sex: Male

DRUGS (18)
  1. CYCLOPHOSPHAMIDE [Suspect]
     Active Substance: CYCLOPHOSPHAMIDE
     Indication: Monoclonal gammopathy
  2. CYCLOPHOSPHAMIDE [Suspect]
     Active Substance: CYCLOPHOSPHAMIDE
     Indication: Henoch-Schonlein purpura
  3. BORTEZOMIB [Suspect]
     Active Substance: BORTEZOMIB
     Indication: Monoclonal gammopathy
  4. BORTEZOMIB [Suspect]
     Active Substance: BORTEZOMIB
     Indication: Henoch-Schonlein purpura
  5. LENALIDOMIDE [Suspect]
     Active Substance: LENALIDOMIDE
     Indication: Monoclonal gammopathy
  6. LENALIDOMIDE [Suspect]
     Active Substance: LENALIDOMIDE
     Indication: Henoch-Schonlein purpura
  7. COLCHICINE [Suspect]
     Active Substance: COLCHICINE
     Indication: Henoch-Schonlein purpura
  8. COLCHICINE [Suspect]
     Active Substance: COLCHICINE
     Indication: Monoclonal gammopathy
  9. DAPSONE\FERROUS OXALATE [Suspect]
     Active Substance: DAPSONE\FERROUS OXALATE
     Indication: Monoclonal gammopathy
  10. DAPSONE\FERROUS OXALATE [Suspect]
     Active Substance: DAPSONE\FERROUS OXALATE
     Indication: Henoch-Schonlein purpura
  11. HYDROXYCHLOROQUINE [Suspect]
     Active Substance: HYDROXYCHLOROQUINE
     Indication: Monoclonal gammopathy
  12. HYDROXYCHLOROQUINE [Suspect]
     Active Substance: HYDROXYCHLOROQUINE
     Indication: Henoch-Schonlein purpura
  13. METHOTREXATE [Suspect]
     Active Substance: METHOTREXATE
     Indication: Monoclonal gammopathy
  14. METHOTREXATE [Suspect]
     Active Substance: METHOTREXATE
     Indication: Henoch-Schonlein purpura
  15. RITUXIMAB [Suspect]
     Active Substance: RITUXIMAB
     Indication: Henoch-Schonlein purpura
  16. RITUXIMAB [Suspect]
     Active Substance: RITUXIMAB
     Indication: Monoclonal gammopathy
  17. DEXAMETHASONE [Suspect]
     Active Substance: DEXAMETHASONE
     Indication: Henoch-Schonlein purpura
  18. DEXAMETHASONE [Suspect]
     Active Substance: DEXAMETHASONE
     Indication: Monoclonal gammopathy

REACTIONS (6)
  - Tumour flare [Recovered/Resolved]
  - Monoclonal gammopathy [Recovered/Resolved]
  - Henoch-Schonlein purpura [Recovered/Resolved]
  - Drug ineffective for unapproved indication [Unknown]
  - Off label use [Unknown]
  - Therapeutic response unexpected [Unknown]
